FAERS Safety Report 21935970 (Version 2)
Quarter: 2023Q1

REPORT INFORMATION
  Report Type: Spontaneous
  Country: US (occurrence: US)
  Receive Date: 20230201
  Receipt Date: 20230202
  Transmission Date: 20230417
  Serious: No
  Sender: FDA-Public Use
  Company Number: US-002147023-NVSC2023US022447

PATIENT
  Sex: Female

DRUGS (1)
  1. TAFINLAR [Suspect]
     Active Substance: DABRAFENIB MESYLATE
     Indication: Brain neoplasm benign
     Dosage: 75 MG, BID
     Route: 048
     Dates: start: 202301

REACTIONS (3)
  - Alopecia [Unknown]
  - Fatigue [Unknown]
  - Product use in unapproved indication [Unknown]
